FAERS Safety Report 18340686 (Version 1)
Quarter: 2020Q4

REPORT INFORMATION
  Report Type: Spontaneous
  Country: FR (occurrence: FR)
  Receive Date: 20201002
  Receipt Date: 20201002
  Transmission Date: 20210113
  Serious: Yes (Other)
  Sender: FDA-Public Use
  Company Number: FR-AUROBINDO-AUR-APL-2020-050505

PATIENT
  Age: 5 Year
  Sex: Female

DRUGS (1)
  1. AZITHROMYCIN ANHYDROUS. [Suspect]
     Active Substance: AZITHROMYCIN ANHYDROUS
     Indication: LYME DISEASE
     Dosage: NP
     Route: 048
     Dates: start: 202005, end: 202005

REACTIONS (2)
  - Cranial nerve paralysis [Not Recovered/Not Resolved]
  - Papilloedema [Not Recovered/Not Resolved]
